FAERS Safety Report 14027038 (Version 5)
Quarter: 2018Q1

REPORT INFORMATION
  Report Type: Report from Study
  Country: US (occurrence: US)
  Receive Date: 20170929
  Receipt Date: 20180214
  Transmission Date: 20180508
  Serious: Yes (Hospitalization, Other)
  Sender: FDA-Public Use
  Company Number: US-B.I. PHARMACEUTICALS,INC./RIDGEFIELD-2017-BI-052448

PATIENT
  Age: 81 Year
  Sex: Male
  Weight: 88 kg

DRUGS (11)
  1. SYNTHROID [Concomitant]
     Active Substance: LEVOTHYROXINE SODIUM
     Indication: HYPOTHYROIDISM
     Route: 048
     Dates: start: 20111004
  2. ESBRIET [Concomitant]
     Active Substance: PIRFENIDONE
     Indication: IDIOPATHIC PULMONARY FIBROSIS
     Route: 048
     Dates: start: 20171031
  3. SILDENAFIL. [Suspect]
     Active Substance: SILDENAFIL
     Indication: IDIOPATHIC PULMONARY FIBROSIS
     Route: 048
     Dates: start: 20170906, end: 20171031
  4. NINTEDANIB [Suspect]
     Active Substance: NINTEDANIB
     Route: 048
     Dates: end: 20171031
  5. LOPRESSOR [Concomitant]
     Active Substance: METOPROLOL TARTRATE
     Indication: HYPERTENSION
  6. ASPIRIN. [Concomitant]
     Active Substance: ASPIRIN
     Indication: PROPHYLAXIS
     Dosage: EC: ENTERIC COATED
     Route: 048
     Dates: start: 20111004
  7. LOPRESSOR [Concomitant]
     Active Substance: METOPROLOL TARTRATE
     Indication: ISCHAEMIC HEART DISEASE PROPHYLAXIS
     Route: 048
     Dates: start: 20150310
  8. NINTEDANIB [Suspect]
     Active Substance: NINTEDANIB
     Indication: IDIOPATHIC PULMONARY FIBROSIS
     Route: 048
     Dates: start: 20170906, end: 20170922
  9. AZELASTIN [Concomitant]
     Indication: RHINITIS ALLERGIC
     Dosage: TOTAL DAILY DOSE: 4 SPRAYS
     Route: 055
     Dates: start: 20150616
  10. PRILOSEC [Concomitant]
     Active Substance: OMEPRAZOLE MAGNESIUM
     Indication: GASTROOESOPHAGEAL REFLUX DISEASE
     Route: 048
     Dates: start: 20111004
  11. CRESTOR [Concomitant]
     Active Substance: ROSUVASTATIN CALCIUM
     Indication: HYPERLIPIDAEMIA
     Route: 048
     Dates: start: 20111004

REACTIONS (2)
  - Idiopathic pulmonary fibrosis [Recovered/Resolved]
  - Pulmonary hypertension [Not Recovered/Not Resolved]

NARRATIVE: CASE EVENT DATE: 20170908
